FAERS Safety Report 7751910-9 (Version None)
Quarter: 2011Q3

REPORT INFORMATION
  Report Type: 
  Country: None (occurrence: None)
  Receive Date: 20110914
  Receipt Date: 20110914
  Transmission Date: 20111222
  Serious: No
  Sender: FDA-Public Use
  Company Number: None

PATIENT
  Sex: Female
  Weight: 63.6 kg

DRUGS (1)
  1. CISPLATIN [Suspect]
     Dosage: 85 MG

REACTIONS (1)
  - LYMPHOPENIA [None]
